FAERS Safety Report 9874771 (Version 1)
Quarter: 2014Q1

REPORT INFORMATION
  Report Type: Spontaneous
  Country: US (occurrence: None)
  Receive Date: 20140205
  Receipt Date: 20140205
  Transmission Date: 20141002
  Serious: Yes (Life-Threatening, Hospitalization)
  Sender: FDA-Public Use
  Company Number: None

PATIENT
  Age: 81 Year
  Sex: Female
  Weight: 65.77 kg

DRUGS (1)
  1. NITROFURANTOIN MACRO [Suspect]
     Indication: CYSTITIS
     Route: 048
     Dates: start: 20110908, end: 20110909

REACTIONS (1)
  - Pneumonia [None]
